FAERS Safety Report 14993518 (Version 1)
Quarter: 2018Q2

REPORT INFORMATION
  Report Type: Spontaneous
  Country: US (occurrence: US)
  Receive Date: 20180610
  Receipt Date: 20180610
  Transmission Date: 20180711
  Serious: Yes (Hospitalization, Other)
  Sender: FDA-Public Use
  Company Number: US-AUROBINDO-AUR-APL-2018-030255

PATIENT
  Age: 47 Year
  Sex: Female

DRUGS (13)
  1. VERAPAMIL [Suspect]
     Active Substance: VERAPAMIL HYDROCHLORIDE
     Dosage: UNK
     Route: 048
  2. DIHYDROERGOTAMINE                  /00017802/ [Suspect]
     Active Substance: DIHYDROERGOTAMINE
     Dosage: 1 MILLIGRAM, 3 TIMES A DAY
     Route: 042
  3. KETOROLAC [Suspect]
     Active Substance: KETOROLAC\KETOROLAC TROMETHAMINE
     Indication: HEADACHE
     Dosage: UNK
     Route: 065
  4. PROCHLORPERAZINE. [Suspect]
     Active Substance: PROCHLORPERAZINE
     Indication: PRODUCT USED FOR UNKNOWN INDICATION
     Dosage: UNK
     Route: 065
  5. PREDNISONE. [Suspect]
     Active Substance: PREDNISONE
     Indication: PRODUCT USED FOR UNKNOWN INDICATION
     Dosage: UNK
     Route: 065
  6. METHAMPHETAMINE                    /00069101/ [Suspect]
     Active Substance: METHAMPHETAMINE
     Indication: PRODUCT USED FOR UNKNOWN INDICATION
     Dosage: UNK
     Route: 065
  7. DIPHENHYDRAMINE. [Suspect]
     Active Substance: DIPHENHYDRAMINE
     Indication: HEADACHE
     Dosage: UNK
     Route: 065
  8. VALPROIC ACID                      /00228502/ [Suspect]
     Active Substance: VALPROATE SODIUM
     Indication: PROPHYLAXIS
     Dosage: 500 MILLIGRAM, TWO TIMES A DAY
     Route: 065
  9. VERAPAMIL [Suspect]
     Active Substance: VERAPAMIL HYDROCHLORIDE
     Indication: PRODUCT USED FOR UNKNOWN INDICATION
     Dosage: UNK
     Route: 042
  10. SERTRALINE [Suspect]
     Active Substance: SERTRALINE HYDROCHLORIDE
     Indication: DEPRESSION
     Dosage: UNK
     Route: 065
  11. TOPIRAMATE. [Suspect]
     Active Substance: TOPIRAMATE
     Indication: PROPHYLAXIS
     Dosage: 25 MILLIGRAM, TWO TIMES A DAY
     Route: 065
  12. DIHYDROERGOTAMINE /00017802/ [Suspect]
     Active Substance: DIHYDROERGOTAMINE
     Indication: PRODUCT USED FOR UNKNOWN INDICATION
     Dosage: UNK
     Route: 065
  13. PROMETHAZINE [Suspect]
     Active Substance: PROMETHAZINE\PROMETHAZINE HYDROCHLORIDE
     Indication: HEADACHE
     Dosage: UNK
     Route: 065

REACTIONS (15)
  - Reversible cerebral vasoconstriction syndrome [Recovering/Resolving]
  - Somnolence [Recovering/Resolving]
  - Ataxia [Recovering/Resolving]
  - Alice in wonderland syndrome [Recovering/Resolving]
  - Headache [Recovering/Resolving]
  - Hemianopia [Recovering/Resolving]
  - Nausea [Recovering/Resolving]
  - Hemiparesis [Recovering/Resolving]
  - Cerebral vasoconstriction [Recovering/Resolving]
  - Visual impairment [Recovering/Resolving]
  - Cerebral disorder [Recovering/Resolving]
  - Photophobia [Recovering/Resolving]
  - Cerebral haemorrhage [Recovering/Resolving]
  - Migraine [Recovering/Resolving]
  - Vomiting [Recovering/Resolving]
